FAERS Safety Report 7805538-2 (Version None)
Quarter: 2011Q4

REPORT INFORMATION
  Report Type: 
  Country: None (occurrence: None)
  Receive Date: 20111010
  Receipt Date: 20110929
  Transmission Date: 20120403
  Serious: No
  Sender: FDA-Public Use
  Company Number: JP-ASTRAZENECA-2011SE45046

PATIENT
  Age: 20 Year
  Sex: Female
  Weight: 57 kg

DRUGS (15)
  1. DIPRIVAN [Suspect]
     Indication: INDUCTION AND MAINTENANCE OF ANAESTHESIA
     Route: 042
     Dates: start: 20110726, end: 20110726
  2. FENTANYL [Concomitant]
     Indication: INDUCTION AND MAINTENANCE OF ANAESTHESIA
     Route: 042
     Dates: start: 20110726
  3. ULTIVA [Concomitant]
     Indication: ANALGESIC THERAPY
     Route: 042
     Dates: start: 20110726
  4. SEVOFLURANE [Concomitant]
     Indication: ANAESTHESIA PROCEDURE
     Dosage: DOSE UNKNOWN
     Route: 055
     Dates: start: 20110726
  5. SODIUM BICARBONATE [Concomitant]
     Route: 042
     Dates: start: 20110726
  6. MINOCYCLINE HCL [Concomitant]
     Route: 042
     Dates: start: 20110726
  7. DROPERIDOL [Concomitant]
     Route: 042
     Dates: start: 20110726
  8. FLURBIPROFEN [Concomitant]
     Indication: ANALGESIC THERAPY
     Route: 042
     Dates: start: 20110726
  9. DECADRON [Concomitant]
     Route: 042
     Dates: start: 20110726
  10. NEO-SYNESIN [Concomitant]
     Route: 042
     Dates: start: 20110726
  11. XYLOCAINE W/ EPINEPHRINE [Concomitant]
     Indication: ANAESTHESIA PROCEDURE
     Route: 042
     Dates: start: 20110726
  12. BICARBON [Concomitant]
     Route: 042
     Dates: start: 20110726
  13. ROCURONIUM BROMIDE [Concomitant]
     Indication: HYPOTONIA
     Route: 042
     Dates: start: 20110726
  14. EPHEDRIN [Concomitant]
     Route: 042
     Dates: start: 20110726
  15. BRIDION [Concomitant]
     Route: 042
     Dates: start: 20110726

REACTIONS (1)
  - LACTIC ACIDOSIS [None]
